FAERS Safety Report 9499585 (Version 1)
Quarter: 2013Q3

REPORT INFORMATION
  Report Type: Spontaneous
  Country: US (occurrence: US)
  Receive Date: 20130905
  Receipt Date: 20130905
  Transmission Date: 20140515
  Serious: No
  Sender: FDA-Public Use
  Company Number: US-PFIZER INC-2013248800

PATIENT
  Age: 69 Year
  Sex: 0

DRUGS (7)
  1. VISTARIL [Suspect]
     Dosage: UNK
  2. CODEINE [Suspect]
     Dosage: UNK
  3. STADOL [Suspect]
     Dosage: UNK
  4. TEGRETOL [Suspect]
     Dosage: UNK
  5. LAMICTAL [Suspect]
     Dosage: UNK
  6. TRILEPTAL [Suspect]
     Dosage: UNK
  7. ZONEGRAN [Suspect]
     Dosage: UNK

REACTIONS (1)
  - Drug hypersensitivity [Unknown]
